FAERS Safety Report 21961825 (Version 1)
Quarter: 2023Q1

REPORT INFORMATION
  Report Type: Spontaneous
  Country: SI (occurrence: None)
  Receive Date: 20230207
  Receipt Date: 20230207
  Transmission Date: 20230417
  Serious: Yes (Other)
  Sender: FDA-Public Use
  Company Number: 2023A025276

PATIENT
  Age: 27 Year
  Sex: Female

DRUGS (6)
  1. ESOMEPRAZOLE [Suspect]
     Active Substance: ESOMEPRAZOLE
     Indication: Product used for unknown indication
     Dosage: UNK
     Dates: start: 202012
  2. MIRTAZAPINE [Concomitant]
     Active Substance: MIRTAZAPINE
     Indication: Product used for unknown indication
     Dosage: UNK
     Dates: start: 202103
  3. MIRTAZAPINE [Concomitant]
     Active Substance: MIRTAZAPINE
     Indication: Product used for unknown indication
     Dosage: UNK
     Dates: start: 202101
  4. BISACODYL [Concomitant]
     Active Substance: BISACODYL
     Indication: Product used for unknown indication
     Dosage: UNK
     Dates: start: 202012
  5. METAMIZOLE [Concomitant]
     Active Substance: METAMIZOLE
     Indication: Product used for unknown indication
     Dosage: UNK
     Dates: start: 202101
  6. METAMIZOLE [Concomitant]
     Active Substance: METAMIZOLE
     Indication: Product used for unknown indication
     Dosage: UNK
     Dates: start: 202103

REACTIONS (23)
  - Helicobacter test positive [Unknown]
  - Hiatus hernia [Unknown]
  - Duodenitis [Unknown]
  - Palpitations [Not Recovered/Not Resolved]
  - Pain in extremity [Unknown]
  - Dyspnoea [Unknown]
  - Tension headache [Unknown]
  - Ovarian cyst [Not Recovered/Not Resolved]
  - Vasodilatation [Unknown]
  - Musculoskeletal chest pain [Not Recovered/Not Resolved]
  - Sensation of foreign body [Unknown]
  - Decreased appetite [Unknown]
  - Neck pain [Unknown]
  - Cervicobrachial syndrome [Unknown]
  - Paraesthesia [Unknown]
  - Abdominal pain upper [Not Recovered/Not Resolved]
  - Dry mouth [Unknown]
  - Insomnia [Not Recovered/Not Resolved]
  - Abdominal distension [Unknown]
  - Constipation [Unknown]
  - Headache [Unknown]
  - Flatulence [Unknown]
  - Abdominal pain [Unknown]

NARRATIVE: CASE EVENT DATE: 20201201
